FAERS Safety Report 8180604-3 (Version None)
Quarter: 2012Q1

REPORT INFORMATION
  Report Type: 
  Country: None (occurrence: None)
  Receive Date: 20120302
  Receipt Date: 20120222
  Transmission Date: 20120608
  Serious: Yes (Hospitalization)
  Sender: FDA-Public Use
  Company Number: JP-ROCHE-1035621

PATIENT
  Sex: Female
  Weight: 52 kg

DRUGS (2)
  1. PACLITAXEL [Suspect]
     Indication: METASTATIC GASTRIC CANCER
     Route: 041
     Dates: start: 20120113, end: 20120113
  2. HERCEPTIN [Suspect]
     Indication: METASTATIC GASTRIC CANCER
     Route: 041
     Dates: start: 20120113, end: 20120113

REACTIONS (4)
  - GASTROINTESTINAL MUCOSAL DISORDER [None]
  - ANAEMIA [None]
  - LARGE INTESTINAL HAEMORRHAGE [None]
  - SMALL INTESTINAL HAEMORRHAGE [None]
